FAERS Safety Report 20083326 (Version 1)
Quarter: 2021Q4

REPORT INFORMATION
  Report Type: Spontaneous
  Country: DE (occurrence: DE)
  Receive Date: 20211117
  Receipt Date: 20211117
  Transmission Date: 20220303
  Serious: Yes (Hospitalization)
  Sender: FDA-Public Use
  Company Number: DE-ADRED-07049-02

PATIENT
  Age: 72 Year
  Sex: Male
  Weight: 65 kg

DRUGS (11)
  1. BISOPROLOL [Suspect]
     Active Substance: BISOPROLOL
     Indication: Product used for unknown indication
     Dosage: 2.5 MILLIGRAM, QD, 1-0-0-0
  2. FENOTEROL [Concomitant]
     Active Substance: FENOTEROL
     Dosage: BEDARF
  3. MORPHIN                            /00036302/ [Concomitant]
     Dosage: 10 MILLIGRAM, QD, 1-0-0-0
  4. AZITHROMYCIN [Concomitant]
     Active Substance: AZITHROMYCIN
     Dosage: 250 MILLIGRAM, QD, 1-0-0-0
  5. GLYCOPYRRONIUM\INDACATEROL [Concomitant]
     Active Substance: GLYCOPYRRONIUM\INDACATEROL
     Dosage: 85|43 ?G, 1-0-0-0
  6. ALENDRONIC ACID [Concomitant]
     Active Substance: ALENDRONIC ACID
     Dosage: 70 MILLIGRAM, SCHEMA
  7. ACETYLCYSTEINE [Concomitant]
     Active Substance: ACETYLCYSTEINE
     Dosage: 600 MILLIGRAM, QD, 1-0-0-0
  8. SPIRONOLACTONE [Concomitant]
     Active Substance: SPIRONOLACTONE
     Dosage: 25 MILLIGRAM, QD, 0-1-0-0
  9. TORSEMIDE [Concomitant]
     Active Substance: TORSEMIDE
     Dosage: 10 MILLIGRAM, 2-1-0-0
  10. SIMVASTATIN [Concomitant]
     Active Substance: SIMVASTATIN
     Dosage: 20 MILLIGRAM, QD,  0-0-1-0
  11. PANTOPRAZOLE [Concomitant]
     Active Substance: PANTOPRAZOLE
     Dosage: 10 MILLIGRAM, QD,  1-0-0-0

REACTIONS (8)
  - Condition aggravated [Unknown]
  - Electrocardiogram abnormal [Unknown]
  - Dyspnoea [Unknown]
  - Systemic infection [Unknown]
  - Anaemia [Unknown]
  - Renal impairment [Unknown]
  - Hyperglycaemia [Unknown]
  - Acute respiratory failure [Unknown]
